APPROVED DRUG PRODUCT: EMEND
Active Ingredient: APREPITANT
Strength: 125MG/KIT
Dosage Form/Route: FOR SUSPENSION;ORAL
Application: N207865 | Product #001
Applicant: MERCK SHARP AND DOHME CORP A SUB OF MERCK AND CO INC
Approved: Dec 17, 2015 | RLD: Yes | RS: Yes | Type: RX

PATENTS:
Patent 8258132 | Expires: Sep 26, 2027